FAERS Safety Report 17971419 (Version 5)
Quarter: 2020Q3

REPORT INFORMATION
  Report Type: Report from Study
  Country: FR (occurrence: FR)
  Receive Date: 20200702
  Receipt Date: 20200724
  Transmission Date: 20201103
  Serious: Yes (Death, Life-Threatening, Hospitalization)
  Sender: FDA-Public Use
  Company Number: FR-AUROBINDO-AUR-APL-2020-031896

PATIENT
  Age: 80 Year
  Sex: Male

DRUGS (14)
  1. REMDESIVIR. [Suspect]
     Active Substance: REMDESIVIR
     Indication: COVID-19
     Dosage: 200 MILLIGRAM (LOADING DOSE)
     Route: 041
     Dates: start: 202001, end: 20200130
  2. MEROPENEM. [Suspect]
     Active Substance: MEROPENEM
     Indication: ACINETOBACTER INFECTION
     Dosage: UNK
     Route: 065
     Dates: start: 202001
  3. ISAVUCONAZONIUM SULFATE [Suspect]
     Active Substance: ISAVUCONAZONIUM SULFATE
     Indication: ASPERGILLUS INFECTION
     Dosage: UNK
     Route: 065
     Dates: start: 202001
  4. REMDESIVIR. [Suspect]
     Active Substance: REMDESIVIR
     Indication: ACINETOBACTER INFECTION
     Dosage: UNK
     Route: 065
     Dates: start: 20200205
  5. TIGECYCLINE. [Suspect]
     Active Substance: TIGECYCLINE
     Indication: COVID-19
  6. LEVOFLOXACIN. [Suspect]
     Active Substance: LEVOFLOXACIN
     Indication: COVID-19
  7. ISAVUCONAZONIUM SULFATE [Suspect]
     Active Substance: ISAVUCONAZONIUM SULFATE
     Indication: COVID-19
  8. COLIMYCINE [COLISTIN SULFATE] [Suspect]
     Active Substance: COLISTIN SULFATE
     Indication: ACINETOBACTER INFECTION
     Dosage: UNK
     Route: 065
     Dates: start: 202001
  9. TIGECYCLINE. [Suspect]
     Active Substance: TIGECYCLINE
     Indication: ACINETOBACTER INFECTION
     Dosage: UNK
     Route: 065
     Dates: start: 202001
  10. LEVOFLOXACIN. [Suspect]
     Active Substance: LEVOFLOXACIN
     Indication: ACINETOBACTER INFECTION
     Dosage: UNK
     Route: 065
     Dates: start: 202001
  11. MEROPENEM. [Suspect]
     Active Substance: MEROPENEM
     Indication: COVID-19
  12. VORICONAZOLE. [Suspect]
     Active Substance: VORICONAZOLE
     Indication: ASPERGILLUS INFECTION
     Dosage: UNK
     Route: 065
     Dates: start: 202001
  13. COLIMYCINE [COLISTIN SULFATE] [Suspect]
     Active Substance: COLISTIN SULFATE
     Indication: COVID-19
  14. REMDESIVIR. [Suspect]
     Active Substance: REMDESIVIR
     Indication: ASPERGILLUS INFECTION

REACTIONS (3)
  - Drug ineffective for unapproved indication [Fatal]
  - Drug ineffective [Unknown]
  - Off label use [Fatal]

NARRATIVE: CASE EVENT DATE: 2020
